FAERS Safety Report 6186998-2 (Version None)
Quarter: 2009Q2

REPORT INFORMATION
  Report Type: 
  Country: None (occurrence: None)
  Receive Date: 20090512
  Receipt Date: 20090428
  Transmission Date: 20091009
  Serious: Yes (Other)
  Sender: FDA-Public Use
  Company Number: JP-BAYER-200911358BYL

PATIENT
  Age: 66 Year
  Sex: Female
  Weight: 48 kg

DRUGS (6)
  1. FLUDARA [Suspect]
     Indication: APLASTIC ANAEMIA
     Dosage: AS USED: 25 MG/M2  UNIT DOSE: 50 MG
     Route: 042
     Dates: start: 20080611, end: 20080615
  2. ALKERAN [Concomitant]
     Indication: APLASTIC ANAEMIA
     Dosage: AS USED: 40 MG/M2
     Route: 042
     Dates: start: 20080613, end: 20080613
  3. ALKERAN [Concomitant]
     Dosage: AS USED: 40 MG/M2
     Route: 042
     Dates: start: 20080615, end: 20080615
  4. DEPAKENE [Concomitant]
     Indication: CONVULSION PROPHYLAXIS
     Dosage: TOTAL DAILY DOSE: 800 MG  UNIT DOSE: 200 MG
     Route: 048
     Dates: start: 20080617, end: 20080925
  5. CONCENTRATED RED CELLS [Concomitant]
     Indication: PACKED RED BLOOD CELL TRANSFUSION
     Route: 042
     Dates: start: 20080618, end: 20080718
  6. PLATELETS [Concomitant]
     Indication: PLATELET TRANSFUSION
     Route: 042
     Dates: start: 20080613, end: 20080710

REACTIONS (2)
  - ACUTE GRAFT VERSUS HOST DISEASE [None]
  - HUMAN HERPESVIRUS 6 INFECTION [None]
